FAERS Safety Report 9242989 (Version 1)
Quarter: 2013Q2

REPORT INFORMATION
  Report Type: Spontaneous
  Country: US (occurrence: US)
  Receive Date: 20130419
  Receipt Date: 20130419
  Transmission Date: 20140414
  Serious: Yes (Death, Hospitalization)
  Sender: FDA-Public Use
  Company Number: PHHY2013US038184

PATIENT
  Sex: Female

DRUGS (6)
  1. CARBOPLATIN [Suspect]
     Indication: OVARIAN CANCER STAGE III
  2. PACLITAXEL [Suspect]
     Indication: OVARIAN CANCER STAGE III
  3. CISPLATIN [Suspect]
     Indication: OVARIAN CANCER STAGE III
     Route: 033
  4. GEMCITABINE [Suspect]
     Indication: OVARIAN CANCER
  5. PEGYLATED LIPOSOMAL DOXORUBICIN HYDROCHLORIDE [Suspect]
     Indication: OVARIAN CANCER
     Dosage: 905 MG/M2, UNK
     Dates: start: 200809, end: 200911
  6. BEVACIZUMAB [Suspect]
     Indication: OVARIAN CANCER
     Dosage: UNK UKN, UNK
     Dates: start: 200809, end: 200911

REACTIONS (16)
  - Ovarian cancer [Fatal]
  - Malignant neoplasm progression [Fatal]
  - Abdominal pain [Fatal]
  - Endocarditis noninfective [Unknown]
  - Peripheral ischaemia [Unknown]
  - Renal failure chronic [Recovering/Resolving]
  - Proteinuria [Recovering/Resolving]
  - Renal impairment [Recovering/Resolving]
  - Thrombotic microangiopathy [Recovering/Resolving]
  - Oedema [Recovering/Resolving]
  - Encephalopathy [Unknown]
  - Convulsion [Unknown]
  - Headache [Unknown]
  - Hypertension [Unknown]
  - Dyspnoea [Unknown]
  - Ovarian cancer recurrent [Unknown]
